FAERS Safety Report 6815826-4 (Version None)
Quarter: 2010Q3

REPORT INFORMATION
  Report Type: 
  Country: None (occurrence: None)
  Receive Date: 20100705
  Receipt Date: 20100625
  Transmission Date: 20110219
  Serious: Yes (Death)
  Sender: FDA-Public Use
  Company Number: US-BIOGENIDEC-2010BI019251

PATIENT
  Age: 61 Year
  Sex: Male
  Weight: 68 kg

DRUGS (1)
  1. TYSABRI [Suspect]
     Indication: MULTIPLE SCLEROSIS
     Route: 042
     Dates: start: 20100602, end: 20100602

REACTIONS (4)
  - COMPLETED SUICIDE [None]
  - DEPRESSION [None]
  - FEELING OF DESPAIR [None]
  - HYPERTENSION [None]
